FAERS Safety Report 7884336-8 (Version None)
Quarter: 2011Q4

REPORT INFORMATION
  Report Type: 
  Country: None (occurrence: None)
  Receive Date: 20111102
  Receipt Date: 20111101
  Transmission Date: 20120403
  Serious: Yes (Other)
  Sender: FDA-Public Use
  Company Number: US-ROCHE-783660

PATIENT
  Sex: Male
  Weight: 69.008 kg

DRUGS (1)
  1. ACCUTANE [Suspect]
     Indication: ACNE
     Route: 048
     Dates: start: 19960115, end: 19960722

REACTIONS (3)
  - INFLAMMATORY BOWEL DISEASE [None]
  - STRESS [None]
  - CROHN'S DISEASE [None]
